FAERS Safety Report 10152470 (Version 2)
Quarter: 2014Q2

REPORT INFORMATION
  Report Type: Spontaneous
  Country: JP (occurrence: JP)
  Receive Date: 20140505
  Receipt Date: 20140527
  Transmission Date: 20141212
  Serious: Yes (Other)
  Sender: FDA-Public Use
  Company Number: JP-SA-2014SA056830

PATIENT
  Sex: Female

DRUGS (3)
  1. ALLEGRA [Suspect]
     Indication: PRODUCT USED FOR UNKNOWN INDICATION
     Route: 048
  2. BETANIS [Suspect]
     Indication: PRODUCT USED FOR UNKNOWN INDICATION
     Route: 065
  3. ALL OTHER THERAPEUTIC PRODUCTS [Concomitant]

REACTIONS (1)
  - Electrocardiogram QT prolonged [Unknown]
